FAERS Safety Report 4810388-5 (Version None)
Quarter: 2005Q4

REPORT INFORMATION
  Report Type: 
  Country: None (occurrence: None)
  Receive Date: 20051024
  Receipt Date: 20051017
  Transmission Date: 20060501
  Serious: Yes (Death, Hospitalization)
  Sender: FDA-Public Use
  Company Number: RS005552-F

PATIENT
  Age: 76 Year
  Sex: Female

DRUGS (13)
  1. RABEPRAZOLE SODIUM [Suspect]
     Dosage: 1 IN 1 D, ORAL
     Route: 048
     Dates: start: 20040831, end: 20040913
  2. LORAZEPAM [Suspect]
     Dosage: 500 MG, ORAL
     Route: 048
     Dates: start: 20040830, end: 20040913
  3. THALIDOMIDE LAPHAL (THALIDOMIDE) [Suspect]
     Indication: MULTIPLE MYELOMA
     Dosage: 200 MG, ORAL
     Route: 048
     Dates: start: 20040830, end: 20040902
  4. ZOMETA [Suspect]
     Dosage: 4 MG, INTRAVENOUS
     Route: 042
     Dates: start: 20040831, end: 20040831
  5. SOLUPRED (PREDNISOLONE SODIUM SULFOBENZOATE) [Suspect]
     Dosage: 20 MG, ORAL
     Route: 048
     Dates: start: 20040831, end: 20040913
  6. EFFEXOR [Suspect]
     Dosage: 37.5 MG, ORAL
     Route: 048
     Dates: start: 20040831, end: 20040913
  7. DOXORUBICIN HCL [Concomitant]
  8. DEXAMETHASONE [Concomitant]
  9. MORPHINE SULFATE [Concomitant]
  10. LEVOTHYROXINE SODIUM [Concomitant]
  11. SPECIAFOLDINE (FOLIC ACID) [Concomitant]
  12. POTASSIUM CHLORIDE [Concomitant]
  13. MAGNE-B6 (DYNAMAG) [Concomitant]

REACTIONS (7)
  - COMA [None]
  - CONDITION AGGRAVATED [None]
  - LUNG INFECTION [None]
  - NEUROLOGICAL SYMPTOM [None]
  - NEUTROPENIA [None]
  - PSEUDOMONAL SEPSIS [None]
  - THROMBOCYTOPENIA [None]
